FAERS Safety Report 16087467 (Version 2)
Quarter: 2022Q4

REPORT INFORMATION
  Report Type: Spontaneous
  Country: CA (occurrence: CA)
  Receive Date: 20190319
  Receipt Date: 20221003
  Transmission Date: 20230113
  Serious: Yes (Other)
  Sender: FDA-Public Use
  Company Number: CA-009507513-1903CAN006527

PATIENT
  Age: 58 Year
  Sex: Female

DRUGS (7)
  1. TEMODAL [Suspect]
     Active Substance: TEMOZOLOMIDE
     Indication: Glioblastoma multiforme
     Dosage: 90 MILLIGRAM, ONE EVERY ONE DAY (ALSO REPORTED AS 50 MG/M2)
     Route: 048
  2. TEMODAL [Suspect]
     Active Substance: TEMOZOLOMIDE
     Indication: Product used for unknown indication
     Dosage: 140 MILLIGRAM, ONE EVERY ONE DAY
     Route: 048
  3. TEMODAL [Suspect]
     Active Substance: TEMOZOLOMIDE
     Dosage: UNK
     Route: 048
  4. TEMODAL [Suspect]
     Active Substance: TEMOZOLOMIDE
     Dosage: UNK
     Route: 048
  5. GILOTRIF [Suspect]
     Active Substance: AFATINIB
     Indication: Glioblastoma multiforme
     Dosage: 30 MILLIGRAM, ONE EVERY ONE DAY
     Route: 048
  6. GILOTRIF [Suspect]
     Active Substance: AFATINIB
     Indication: Product used for unknown indication
     Dosage: 1 DOSAGE FORM
     Route: 048
  7. GILOTRIF [Suspect]
     Active Substance: AFATINIB
     Dosage: UNK
     Route: 048

REACTIONS (8)
  - Paronychia [Recovering/Resolving]
  - Weight decreased [Recovering/Resolving]
  - Diarrhoea [Recovering/Resolving]
  - Fatigue [Recovering/Resolving]
  - Nausea [Recovering/Resolving]
  - Rash [Recovering/Resolving]
  - Rash maculo-papular [Recovering/Resolving]
  - Vomiting [Recovering/Resolving]
